FAERS Safety Report 8076862-6 (Version None)
Quarter: 2011Q4

REPORT INFORMATION
  Report Type: 
  Country: None (occurrence: None)
  Receive Date: 20111221
  Receipt Date: 20110607
  Transmission Date: 20120403
  Serious: Yes (Hospitalization, Other)
  Sender: FDA-Public Use
  Company Number: PHHY2011US42030

PATIENT
  Age: 45 Year
  Sex: Female
  Weight: 69.8 kg

DRUGS (1)
  1. EXJADE [Suspect]
     Indication: SICKLE CELL ANAEMIA
     Dosage: 1500 MG, DAILY,ORAL
     Route: 048
     Dates: end: 20110502

REACTIONS (2)
  - RENAL FAILURE [None]
  - SICKLE CELL ANAEMIA WITH CRISIS [None]
